FAERS Safety Report 5629579-9 (Version None)
Quarter: 2008Q1

REPORT INFORMATION
  Report Type: 
  Country: None (occurrence: None)
  Receive Date: 20080218
  Receipt Date: 20080214
  Transmission Date: 20080703
  Serious: Yes (Other)
  Sender: FDA-Public Use
  Company Number: AU-ASTRAZENECA-2008AP01051

PATIENT
  Age: 33622 Day
  Sex: Female
  Weight: 55 kg

DRUGS (1)
  1. SEROQUEL [Suspect]
     Route: 048
     Dates: start: 20061115, end: 20070417

REACTIONS (2)
  - SOMNOLENCE [None]
  - TRANSIENT ISCHAEMIC ATTACK [None]
